FAERS Safety Report 24244916 (Version 2)
Quarter: 2024Q3

REPORT INFORMATION
  Report Type: Spontaneous
  Country: CA (occurrence: CA)
  Receive Date: 20240823
  Receipt Date: 20240828
  Transmission Date: 20241017
  Serious: Yes (Other)
  Sender: EISAI
  Company Number: CA-Eisai-EC-2023-144863

PATIENT
  Age: 3 Month
  Sex: Male

DRUGS (17)
  1. RUFINAMIDE [Suspect]
     Active Substance: RUFINAMIDE
     Indication: Seizure
     Dosage: DOSE AND FREQUENCY UNKNOWN
     Route: 048
  2. RUFINAMIDE [Suspect]
     Active Substance: RUFINAMIDE
     Indication: Epilepsy
  3. CANNABIS SATIVA FLOWERING TOP [Suspect]
     Active Substance: CANNABIS SATIVA FLOWERING TOP
     Indication: Seizure
     Dosage: DOSE AND FREQUENCY UNKNOWN
  4. CANNABIS SATIVA FLOWERING TOP [Suspect]
     Active Substance: CANNABIS SATIVA FLOWERING TOP
     Indication: Epilepsy
  5. CLOBAZAM [Suspect]
     Active Substance: CLOBAZAM
     Indication: Seizure
     Dosage: DOSE AND FREQUENCY UNKNOWN
     Route: 048
  6. CLOBAZAM [Suspect]
     Active Substance: CLOBAZAM
     Indication: Epilepsy
  7. LAMOTRIGINE [Suspect]
     Active Substance: LAMOTRIGINE
     Indication: Seizure
     Dosage: DOSE AND FREQUENCY UNKNOWN
     Route: 048
  8. LAMOTRIGINE [Suspect]
     Active Substance: LAMOTRIGINE
     Indication: Epilepsy
  9. PREDNISOLONE [Suspect]
     Active Substance: PREDNISOLONE
     Indication: Seizure
     Dosage: DOSE AND FREQUENCY UNKNOWN
  10. PREDNISOLONE [Suspect]
     Active Substance: PREDNISOLONE
     Indication: Epilepsy
  11. PREDNISOLONE [Suspect]
     Active Substance: PREDNISOLONE
  12. TOPIRAMATE [Suspect]
     Active Substance: TOPIRAMATE
     Indication: Seizure
     Dosage: DOSE AND FREQUENCY UNKNOWN
  13. TOPIRAMATE [Suspect]
     Active Substance: TOPIRAMATE
     Indication: Epilepsy
  14. VALPROIC ACID [Suspect]
     Active Substance: VALPROIC ACID
     Indication: Seizure
     Dosage: DOSE AND FREQUENCY UNKNOWN
  15. VALPROIC ACID [Suspect]
     Active Substance: VALPROIC ACID
     Indication: Epilepsy
  16. VIGABATRIN [Suspect]
     Active Substance: VIGABATRIN
     Indication: Seizure
     Dosage: DOSE AND FREQUENCY UNKNOWN
     Route: 048
  17. VIGABATRIN [Suspect]
     Active Substance: VIGABATRIN
     Indication: Epilepsy

REACTIONS (2)
  - Drug ineffective [Unknown]
  - Product use issue [Unknown]
